FAERS Safety Report 6604641-2 (Version None)
Quarter: 2010Q1

REPORT INFORMATION
  Report Type: 
  Country: None (occurrence: None)
  Receive Date: 20100226
  Receipt Date: 20100217
  Transmission Date: 20100710
  Serious: Yes (Other)
  Sender: FDA-Public Use
  Company Number: JP-PFIZER INC-2010020725

PATIENT
  Age: 60 Year
  Sex: Female

DRUGS (3)
  1. LIPITOR [Suspect]
     Indication: HYPERCHOLESTEROLAEMIA
     Dosage: 5 MG, 1X/DAY
     Route: 048
  2. PERDIPINE [Concomitant]
     Dosage: UNK
  3. DEPAS [Concomitant]
     Dosage: UNK
     Route: 048

REACTIONS (3)
  - FACIAL NERVE DISORDER [None]
  - HYPOAESTHESIA ORAL [None]
  - MYALGIA [None]
